FAERS Safety Report 5990829-0 (Version None)
Quarter: 2008Q4

REPORT INFORMATION
  Report Type: 
  Country: None (occurrence: None)
  Receive Date: 20081202
  Receipt Date: 20071113
  Transmission Date: 20090506
  Serious: Yes (Disabling, Other)
  Sender: FDA-Public Use
  Company Number: WAES 0711USA02957

PATIENT
  Age: 60 Year
  Sex: Female
  Weight: 60.782 kg

DRUGS (9)
  1. FOSAMAX [Suspect]
     Indication: OSTEOPOROSIS
     Dosage: 70 MG/WKY/PO
     Route: 048
     Dates: start: 20070810, end: 20071009
  2. FOSAMAX PLUS D [Suspect]
     Indication: OSTEOPOROSIS
     Dosage: 70MG/2800 IU/WKY/PO
     Route: 048
     Dates: start: 20060501, end: 20070507
  3. ADVAIR DISKUS 250/50 [Concomitant]
  4. ARIMIDEX [Concomitant]
  5. CLARINEX [Concomitant]
  6. COZAAR [Concomitant]
  7. PROAIR HFA [Concomitant]
  8. CITALOPRAM [Concomitant]
  9. FELODIPINE [Concomitant]

REACTIONS (1)
  - OSTEONECROSIS [None]
